FAERS Safety Report 4427193-4 (Version None)
Quarter: 2004Q3

REPORT INFORMATION
  Report Type: 
  Country: None (occurrence: None)
  Receive Date: 20040726
  Receipt Date: 20040421
  Transmission Date: 20050211
  Serious: Yes (Hospitalization, Other)
  Sender: FDA-Public Use
  Company Number: USA040362683

PATIENT
  Age: 76 Year
  Sex: Female
  Weight: 70 kg

DRUGS (6)
  1. FORTEO [Suspect]
     Indication: OSTEOPOROSIS
     Dosage: 20 UG/1 DAY
     Dates: start: 20031201
  2. CELEBREX [Concomitant]
  3. COUMADIN [Concomitant]
  4. ZOLOFT [Concomitant]
  5. PRILOSEC [Concomitant]
  6. SINGULAIR [Concomitant]

REACTIONS (2)
  - COUGH [None]
  - PNEUMONIA [None]
